FAERS Safety Report 7917632-6 (Version None)
Quarter: 2011Q4

REPORT INFORMATION
  Report Type: 
  Country: None (occurrence: None)
  Receive Date: 20111116
  Receipt Date: 20111104
  Transmission Date: 20120403
  Serious: Yes (Hospitalization, Other)
  Sender: FDA-Public Use
  Company Number: CA-ELI_LILLY_AND_COMPANY-CA201111001323

PATIENT
  Sex: Male

DRUGS (3)
  1. ZYPREXA [Suspect]
     Indication: BIPOLAR DISORDER
     Dosage: 2.5 MG, EACH EVENING
  2. ZYPREXA [Suspect]
     Dosage: 7.5 MG, UNK
  3. ZYPREXA [Suspect]
     Dosage: 5 MG, EACH EVENING

REACTIONS (14)
  - SLEEP APNOEA SYNDROME [None]
  - RHABDOMYOLYSIS [None]
  - BASEDOW'S DISEASE [None]
  - DYSLIPIDAEMIA [None]
  - ACUTE CORONARY SYNDROME [None]
  - PARKINSON'S DISEASE [None]
  - DRUG INTOLERANCE [None]
  - CARDIAC DISORDER [None]
  - RENAL FAILURE [None]
  - CELLULITIS [None]
  - NECROTISING FASCIITIS [None]
  - WEIGHT INCREASED [None]
  - MYOCARDIAL INFARCTION [None]
  - DIABETES MELLITUS [None]
